FAERS Safety Report 8353828-X (Version None)
Quarter: 2012Q2

REPORT INFORMATION
  Report Type: 
  Country: None (occurrence: None)
  Receive Date: 20120511
  Receipt Date: 20111216
  Transmission Date: 20120825
  Serious: No
  Sender: FDA-Public Use
  Company Number: US-GLAXOSMITHKLINE-A0958684A

PATIENT
  Age: 46 Year
  Sex: Female

DRUGS (2)
  1. TYKERB [Suspect]
     Dosage: 1250MG PER DAY
     Route: 065
     Dates: start: 20111209
  2. XELODA [Concomitant]

REACTIONS (5)
  - CONSTIPATION [None]
  - NAUSEA [None]
  - FATIGUE [None]
  - STOMATITIS [None]
  - DECREASED APPETITE [None]
